FAERS Safety Report 23177605 (Version 3)
Quarter: 2024Q1

REPORT INFORMATION
  Report Type: Spontaneous
  Country: US (occurrence: US)
  Receive Date: 20231113
  Receipt Date: 20240202
  Transmission Date: 20240410
  Serious: Yes (Hospitalization, Other)
  Sender: FDA-Public Use
  Company Number: US-PHARMAESSENTIA-US-2023-PEC-002375

PATIENT
  Sex: Female

DRUGS (2)
  1. BESREMI [Suspect]
     Active Substance: ROPEGINTERFERON ALFA-2B-NJFT
     Indication: Polycythaemia vera
     Dosage: 300 MCG, Q2W
     Route: 058
     Dates: start: 20230310
  2. BESREMI [Suspect]
     Active Substance: ROPEGINTERFERON ALFA-2B-NJFT
     Dosage: UNK
     Route: 058

REACTIONS (10)
  - Knee operation [Unknown]
  - Synovial cyst [Unknown]
  - Unevaluable event [Unknown]
  - Gingival pain [Unknown]
  - Pain [Unknown]
  - Injection site erythema [Unknown]
  - Injection site pain [Unknown]
  - Headache [Unknown]
  - Arthralgia [Unknown]
  - Alopecia [Unknown]
